FAERS Safety Report 8880126 (Version 6)
Quarter: 2013Q3

REPORT INFORMATION
  Report Type: Spontaneous
  Country: US (occurrence: US)
  Receive Date: 20121031
  Receipt Date: 20130827
  Transmission Date: 20140515
  Serious: Yes (Hospitalization, Disabling, Other)
  Sender: FDA-Public Use
  Company Number: US-009507513-1210USA010240

PATIENT
  Sex: Female
  Weight: 56.69 kg

DRUGS (14)
  1. FOSAMAX [Suspect]
     Indication: OSTEOPOROSIS
     Dosage: UNK
     Route: 048
     Dates: start: 199911
  2. FOSAMAX [Suspect]
     Dosage: 70 MG, QW
     Route: 048
     Dates: start: 20030915, end: 20070319
  3. FOSAMAX PLUS D [Suspect]
     Indication: OSTEOPOROSIS
     Dosage: 70 MG, UNK
     Route: 048
     Dates: start: 20070320, end: 20081107
  4. ALENDRONATE SODIUM [Suspect]
     Indication: OSTEOPOROSIS
     Dosage: 70 MG, QW
     Route: 048
     Dates: start: 20081201, end: 20090405
  5. ASPIRIN [Concomitant]
     Dosage: 81 MG, QD
     Dates: start: 2000
  6. OMEGA-3 MARINE TRIGLYCERIDES [Concomitant]
     Dosage: 900 MG, QD
     Dates: start: 2000
  7. LOVASTATIN [Concomitant]
     Indication: HYPERLIPIDAEMIA
     Dosage: 10 MG, HS
     Dates: start: 20021016, end: 20080701
  8. METHOTREXATE [Concomitant]
     Indication: RHEUMATOID ARTHRITIS
     Dosage: 15 MG, QW
     Dates: start: 199802, end: 20051220
  9. REMICADE [Concomitant]
     Indication: RHEUMATOID ARTHRITIS
     Dosage: UNK
     Dates: start: 2006
  10. ZOCOR [Concomitant]
     Indication: HYPERLIPIDAEMIA
     Dosage: 40 MG, QD
     Dates: start: 1997
  11. LIPITOR [Concomitant]
     Indication: HYPERLIPIDAEMIA
     Dosage: UNK
  12. FOLIC ACID [Concomitant]
     Dosage: 1 MG, QD
  13. CALCIUM (UNSPECIFIED) [Concomitant]
  14. VITAMIN D (UNSPECIFIED) [Concomitant]

REACTIONS (82)
  - Hip fracture [Not Recovered/Not Resolved]
  - Low turnover osteopathy [Not Recovered/Not Resolved]
  - Stress fracture [Not Recovered/Not Resolved]
  - Open reduction of fracture [Unknown]
  - Osteoporosis [Not Recovered/Not Resolved]
  - Femur fracture [Not Recovered/Not Resolved]
  - Femur fracture [Unknown]
  - Hip arthroplasty [Unknown]
  - Humerus fracture [Unknown]
  - Internal fixation of fracture [Unknown]
  - Vaginal disorder [Unknown]
  - Vaginal disorder [Unknown]
  - Coronary arterial stent insertion [Unknown]
  - Cardiac pacemaker insertion [Unknown]
  - Intramedullary rod insertion [Unknown]
  - Shock haemorrhagic [Unknown]
  - Respiratory failure [Unknown]
  - Subdural haemorrhage [Unknown]
  - Intramedullary rod insertion [Unknown]
  - Medical device removal [Unknown]
  - Surgery [Unknown]
  - Ulna fracture [Unknown]
  - Humerus fracture [Unknown]
  - Upper limb fracture [Unknown]
  - Fall [Unknown]
  - Surgery [Unknown]
  - Surgery [Unknown]
  - Syncope [Unknown]
  - Laceration [Unknown]
  - Haemorrhage [Unknown]
  - Haemorrhagic anaemia [Unknown]
  - Shock [Unknown]
  - Hypothermia [Unknown]
  - Acute coronary syndrome [Unknown]
  - Carotid artery stenosis [Unknown]
  - Atrioventricular block complete [Unknown]
  - Impaired healing [Unknown]
  - Fall [Unknown]
  - Dental prosthesis placement [Unknown]
  - Procedural haemorrhage [Unknown]
  - Coronary artery disease [Unknown]
  - Lumbar spinal stenosis [Unknown]
  - Vaginal disorder [Unknown]
  - Cataract operation [Unknown]
  - Foot operation [Unknown]
  - Increased tendency to bruise [Unknown]
  - Arcus lipoides [Unknown]
  - Kyphoscoliosis [Unknown]
  - Bundle branch block left [Unknown]
  - Bundle branch block right [Unknown]
  - Hypotension [Recovering/Resolving]
  - Dehydration [Unknown]
  - Anaemia [Unknown]
  - Atrioventricular block first degree [Unknown]
  - Cellulitis [Unknown]
  - Muscle injury [Unknown]
  - Bursitis [Unknown]
  - Hypertension [Unknown]
  - Blood blister [Recovering/Resolving]
  - Cardiac murmur [Unknown]
  - Blister infected [Recovering/Resolving]
  - Enterocele [Unknown]
  - Hysterectomy [Unknown]
  - Urinary incontinence [Unknown]
  - Cervicectomy [Unknown]
  - Enterocele [Unknown]
  - Pubis fracture [Unknown]
  - Medical device removal [Unknown]
  - Hypertonic bladder [Unknown]
  - Chest pain [Unknown]
  - Varicose vein [Unknown]
  - Urinary tract infection [Unknown]
  - Cellulitis [Unknown]
  - Troponin increased [Unknown]
  - Oral herpes [Recovering/Resolving]
  - Oral candidiasis [Recovering/Resolving]
  - Soft tissue injury [Unknown]
  - Contusion [Unknown]
  - Asthenia [Unknown]
  - Arthralgia [Unknown]
  - Drug hypersensitivity [Unknown]
  - Lip swelling [Unknown]
